FAERS Safety Report 7903114-4 (Version None)
Quarter: 2011Q4

REPORT INFORMATION
  Report Type: 
  Country: None (occurrence: None)
  Receive Date: 20111109
  Receipt Date: 20111104
  Transmission Date: 20120403
  Serious: Yes (Life-Threatening, Hospitalization)
  Sender: FDA-Public Use
  Company Number: DE-BRISTOL-MYERS SQUIBB COMPANY-16121022

PATIENT
  Age: 63 Year
  Sex: Male

DRUGS (3)
  1. CETUXIMAB [Suspect]
     Indication: OESOPHAGEAL CARCINOMA
     Dosage: RECENT INF 11JUL11 AND RESTARTED ON 15JUN2011:500MG
     Route: 042
     Dates: start: 20110428
  2. CISPLATIN [Suspect]
     Indication: OESOPHAGEAL CARCINOMA
     Dosage: RECENT INF 11JUL11 AND RESTARTED ON 14JUN2011:50MG
     Route: 042
     Dates: start: 20110428
  3. DOCETAXEL [Suspect]
     Indication: OESOPHAGEAL CARCINOMA
     Dosage: RECENT INF 20MAY11 (22 DYS)AND RESTARTED ON 14JUN2011:40MG
     Route: 042
     Dates: start: 20110428

REACTIONS (2)
  - RESPIRATORY FAILURE [None]
  - INFECTIOUS PLEURAL EFFUSION [None]
